FAERS Safety Report 8157453-5 (Version None)
Quarter: 2012Q1

REPORT INFORMATION
  Report Type: 
  Country: None (occurrence: None)
  Receive Date: 20120222
  Receipt Date: 20120217
  Transmission Date: 20120608
  Serious: Yes (Other)
  Sender: FDA-Public Use
  Company Number: DE-ABBOTT-08P-062-0461332-00

PATIENT
  Sex: Female

DRUGS (5)
  1. HUMIRA [Suspect]
     Route: 058
     Dates: start: 20080620
  2. METHOTREXATE [Concomitant]
     Indication: CROHN'S DISEASE
  3. L-THYROX [Concomitant]
     Indication: HYPERTHYROIDISM
  4. NALOXONE [Concomitant]
     Indication: PAIN
  5. HUMIRA [Suspect]
     Indication: CROHN'S DISEASE
     Route: 058
     Dates: start: 20071106, end: 20080620

REACTIONS (5)
  - PAPILLOMA VIRAL INFECTION [None]
  - PARALYSIS [None]
  - MULTIPLE SCLEROSIS [None]
  - SPEECH DISORDER [None]
  - MYALGIA [None]
